FAERS Safety Report 23863330 (Version 1)
Quarter: 2024Q2

REPORT INFORMATION
  Report Type: Spontaneous
  Country: PT (occurrence: PT)
  Receive Date: 20240516
  Receipt Date: 20240516
  Transmission Date: 20240716
  Serious: Yes (Other)
  Sender: FDA-Public Use
  Company Number: PT-GLAXOSMITHKLINE-PT2024GSK061130

PATIENT

DRUGS (2)
  1. BECLOMETHASONE DIPROPIONATE [Suspect]
     Active Substance: BECLOMETHASONE DIPROPIONATE
     Indication: Asthma
     Dosage: 1000 UG, QD
     Route: 055
  2. PREDNISONE [Concomitant]
     Active Substance: PREDNISONE
     Indication: Product used for unknown indication
     Dosage: UNK

REACTIONS (9)
  - Adrenal insufficiency [Unknown]
  - Nausea [Unknown]
  - Vomiting [Recovered/Resolved]
  - Altered state of consciousness [Recovering/Resolving]
  - Hypotension [Unknown]
  - Confusional state [Recovering/Resolving]
  - Tachycardia [Unknown]
  - Hyponatraemia [Recovering/Resolving]
  - Hypothalamic pituitary adrenal axis suppression [Unknown]
